FAERS Safety Report 23592285 (Version 3)
Quarter: 2024Q1

REPORT INFORMATION
  Report Type: Report from Study
  Country: US (occurrence: US)
  Receive Date: 20240304
  Receipt Date: 20240306
  Transmission Date: 20240409
  Serious: Yes (Death)
  Sender: FDA-Public Use
  Company Number: US-ABBVIE-4717966

PATIENT
  Sex: Female

DRUGS (6)
  1. VENCLEXTA [Suspect]
     Active Substance: VENETOCLAX
     Indication: Acute myeloid leukaemia (in remission)
     Dosage: TAKE 70 MILLIGRAMS BY MOUTH EVERY DAY, STARTING ON DAY 4 (2-10 MG TABS AND 1-50 MG TABS)
     Route: 048
  2. VENCLEXTA [Suspect]
     Active Substance: VENETOCLAX
     Indication: Acute myeloid leukaemia (in remission)
     Dosage: DAY 2, 20 MG ONCE DAILY?FORM STRENGTH: 20 MILLIGRAM
     Route: 048
  3. VENCLEXTA [Suspect]
     Active Substance: VENETOCLAX
     Indication: Acute myeloid leukaemia (in remission)
     Dosage: 40 MG ONCE DAILY DAY 3?FORM STRENGTH: 40 MILLIGRAM
     Route: 048
  4. VENCLEXTA [Suspect]
     Active Substance: VENETOCLAX
     Indication: Acute myeloid leukaemia (in remission)
     Dosage: DAY 1, 10 MG ONCE DAILY?FORM STRENGTH: 10 MILLIGRAM
     Route: 048
  5. VENCLEXTA [Suspect]
     Active Substance: VENETOCLAX
     Indication: Acute myeloid leukaemia (in remission)
     Route: 048
  6. VENCLEXTA [Suspect]
     Active Substance: VENETOCLAX
     Indication: Acute myeloid leukaemia (in remission)
     Dosage: TAKE 4 TABLET(S) PER DAY
     Route: 048

REACTIONS (2)
  - Death [Fatal]
  - Off label use [Unknown]
